FAERS Safety Report 5832114-3 (Version None)
Quarter: 2008Q3

REPORT INFORMATION
  Report Type: 
  Country: None (occurrence: None)
  Receive Date: 20080731
  Receipt Date: 20080731
  Transmission Date: 20090109
  Serious: Yes (Hospitalization, Disabling)
  Sender: FDA-Public Use
  Company Number: None

PATIENT
  Age: 12 Year
  Sex: Female
  Weight: 34 kg

DRUGS (10)
  1. ETANERCEPT  25 MG/ML  IMMUNEX CORPORATION, AMGEN [Suspect]
     Indication: JUVENILE ARTHRITIS
     Dosage: 0.9 ML WEEKLY SQ
     Route: 058
     Dates: start: 20071115, end: 20080424
  2. METHOTREXATE [Suspect]
     Indication: JUVENILE ARTHRITIS
     Dosage: 0.5 ML WEEKLY SQ
     Route: 058
     Dates: start: 20070724, end: 20080424
  3. PREDNISOLONE [Concomitant]
  4. NAPROXEN [Concomitant]
  5. OXYMETAZOLINE HCL [Concomitant]
  6. FOCALCIN [Concomitant]
  7. MELATONIN [Concomitant]
  8. CLINDAMYCIN [Concomitant]
  9. VANCOMYCIN HCL [Concomitant]
  10. CEFAZOLIN [Concomitant]

REACTIONS (4)
  - ARTHRALGIA [None]
  - ARTHRITIS BACTERIAL [None]
  - BACTERAEMIA [None]
  - TREATMENT NONCOMPLIANCE [None]
